FAERS Safety Report 20704629 (Version 1)
Quarter: 2022Q2

REPORT INFORMATION
  Report Type: Spontaneous
  Country: US (occurrence: US)
  Receive Date: 20220413
  Receipt Date: 20220413
  Transmission Date: 20220720
  Serious: Yes (Other)
  Sender: FDA-Public Use
  Company Number: US-PIRAMAL PHARMA LIMITED-2022-PEL-000140

PATIENT

DRUGS (1)
  1. GABLOFEN [Suspect]
     Active Substance: BACLOFEN
     Indication: Product used for unknown indication
     Dosage: 118 MCG/DAY
     Route: 037

REACTIONS (1)
  - Cerebrospinal fluid leakage [Unknown]
